FAERS Safety Report 25364252 (Version 1)
Quarter: 2025Q2

REPORT INFORMATION
  Report Type: Spontaneous
  Country: US (occurrence: None)
  Receive Date: 20250524
  Receipt Date: 20250524
  Transmission Date: 20250716
  Serious: No
  Sender: FDA-CTU
  Company Number: None

PATIENT
  Sex: Male

DRUGS (1)
  1. BRAFTOVI [Suspect]
     Active Substance: ENCORAFENIB
     Indication: Colon cancer
     Dosage: 150 MG DAILY ORAL
     Route: 048
     Dates: start: 20250129

REACTIONS (3)
  - Cancer pain [None]
  - Neuralgia [None]
  - Abdominal pain [None]
